FAERS Safety Report 6756917-6 (Version None)
Quarter: 2010Q2

REPORT INFORMATION
  Report Type: 
  Country: None (occurrence: None)
  Receive Date: 20100603
  Receipt Date: 20100603
  Transmission Date: 20101027
  Serious: No
  Sender: FDA-Public Use
  Company Number: None

PATIENT
  Age: 60 Year
  Sex: Male
  Weight: 96 kg

DRUGS (2)
  1. TORSEMIDE [Suspect]
     Indication: CARDIAC FAILURE CONGESTIVE
     Dosage: 200 MG TID PO
     Route: 048
     Dates: start: 20080801
  2. LORAZEPAM [Suspect]
     Dates: end: 20091121

REACTIONS (4)
  - DIZZINESS [None]
  - FALL [None]
  - SEDATION [None]
  - WEIGHT DECREASED [None]
